FAERS Safety Report 4776961-8 (Version None)
Quarter: 2005Q3

REPORT INFORMATION
  Report Type: 
  Country: None (occurrence: None)
  Receive Date: 20050914
  Receipt Date: 20040725
  Transmission Date: 20060218
  Serious: Yes (Death)
  Sender: FDA-Public Use
  Company Number: 163-20785-04070592

PATIENT
  Age: 50 Year
  Sex: Female

DRUGS (17)
  1. THALOMID [Suspect]
     Indication: MYELODYSPLASTIC SYNDROME
     Dosage: 200 MG, DAILY, ORAL
     Route: 048
     Dates: start: 20020301, end: 20030101
  2. ZOCOR [Concomitant]
  3. SYNTHROID [Concomitant]
  4. PROTONIX [Concomitant]
  5. FOLIC ACID [Concomitant]
  6. LEVAQUIN [Concomitant]
  7. PHOSLO [Concomitant]
  8. ZOFRAN [Concomitant]
  9. PLAVIX [Concomitant]
  10. REGLAN [Concomitant]
  11. TOPROL (METOPROLOL SUCCINATE) [Concomitant]
  12. INSULIN [Concomitant]
  13. AGRYLIN [Concomitant]
  14. NITROGLYCERIN (GLYCERYL TRINITRATE) (TABLETS) [Concomitant]
  15. ALTACE [Concomitant]
  16. VIOXX [Concomitant]
  17. ISOSORBIDE MONONITRATE [Concomitant]

REACTIONS (2)
  - CARDIAC ARREST [None]
  - DEATH [None]
